FAERS Safety Report 6504744-7 (Version None)
Quarter: 2009Q4

REPORT INFORMATION
  Report Type: 
  Country: None (occurrence: None)
  Receive Date: 20091215
  Receipt Date: 20091117
  Transmission Date: 20100525
  Serious: Yes (Other)
  Sender: FDA-Public Use
  Company Number: AE-2009-296

PATIENT
  Age: 41 Year
  Sex: Male

DRUGS (8)
  1. ATENOLOL [Suspect]
  2. SIMVASTATIN [Suspect]
  3. EFAVIRENZ [Suspect]
     Indication: HIV INFECTION
     Dates: start: 20030201
  4. LOPINAVIR AND RITONAVIR [Suspect]
     Indication: HIV INFECTION
     Dates: start: 20030201
  5. ASPIRIN [Suspect]
  6. CLOPIDOGREL [Suspect]
  7. STAVUDINE [Suspect]
     Indication: HIV INFECTION
     Dates: start: 20030201
  8. TENOFOVIR [Suspect]
     Indication: HIV INFECTION
     Dates: start: 20030201

REACTIONS (11)
  - ABDOMINAL DISTENSION [None]
  - CORONARY ARTERY OCCLUSION [None]
  - DYSLIPIDAEMIA [None]
  - FAT TISSUE INCREASED [None]
  - LIPOATROPHY [None]
  - LIPODYSTROPHY ACQUIRED [None]
  - LIPOMATOSIS [None]
  - MYOCARDIAL INFARCTION [None]
  - NEUTROPENIA [None]
  - PALPITATIONS [None]
  - SINUS TACHYCARDIA [None]
